FAERS Safety Report 10174087 (Version 1)
Quarter: 2014Q2

REPORT INFORMATION
  Report Type: Spontaneous
  Country: US (occurrence: None)
  Receive Date: 20140416
  Receipt Date: 20140416
  Transmission Date: 20141212
  Serious: Yes (Hospitalization, Other)
  Sender: FDA-Public Use
  Company Number: 163-POMAL-13125381

PATIENT
  Age: 70 Year
  Sex: Female

DRUGS (8)
  1. POMALYST (POMALIDOMIDE) (4 MILLIGRAM, CAPSULES) [Suspect]
     Indication: PLASMA CELL MYELOMA
     Route: 048
     Dates: start: 20131005
  2. AMLODIPINE BESYLATE (AMLODIPINE BESILATE) [Concomitant]
  3. DEXAMETHASONE [Concomitant]
  4. ACYCLOVIR (ACICLOVIR) [Concomitant]
  5. METOPROLOL SUCCINATE [Concomitant]
  6. IRON [Concomitant]
  7. PERI-COLACE [Suspect]
  8. ASA (ACETYLSALICYLIC ACID) [Concomitant]

REACTIONS (2)
  - Pneumonia respiratory syncytial viral [None]
  - Weight decreased [None]
